FAERS Safety Report 5105882-6 (Version None)
Quarter: 2006Q3

REPORT INFORMATION
  Report Type: 
  Country: None (occurrence: None)
  Receive Date: 20060915
  Receipt Date: 20060914
  Transmission Date: 20061208
  Serious: Yes (Hospitalization)
  Sender: FDA-Public Use
  Company Number: FR-GLAXOSMITHKLINE-B0438188A

PATIENT
  Age: 62 Year
  Sex: Male

DRUGS (2)
  1. CLAMOXYL [Suspect]
     Indication: DYSPNOEA
     Dosage: 1G THREE TIMES PER DAY
     Route: 048
     Dates: start: 20060830, end: 20060901
  2. SINTROM [Suspect]
     Dosage: 7MG PER DAY
     Route: 048

REACTIONS (5)
  - ASTHENIA [None]
  - DRUG INTERACTION [None]
  - DYSPNOEA [None]
  - HEART RATE INCREASED [None]
  - PROTHROMBIN LEVEL DECREASED [None]
